FAERS Safety Report 5635307-3 (Version None)
Quarter: 2008Q1

REPORT INFORMATION
  Report Type: 
  Country: None (occurrence: None)
  Receive Date: 20080222
  Receipt Date: 20080213
  Transmission Date: 20080703
  Serious: Yes (Hospitalization, Other)
  Sender: FDA-Public Use
  Company Number: US-ABBOTT-08P-163-0433312-00

PATIENT
  Sex: Male
  Weight: 45.4 kg

DRUGS (5)
  1. HUMIRA [Suspect]
     Indication: CROHN'S DISEASE
     Dosage: PEN
     Route: 058
     Dates: start: 20070101, end: 20080128
  2. HUMIRA [Suspect]
     Dosage: SYRINGE-160MG LOADING DOSE, THEN 40MG EVERY OTHER WEEK
     Route: 058
     Dates: start: 20060401, end: 20070101
  3. PREDNISONE TAB [Concomitant]
     Indication: CROHN'S DISEASE
     Route: 048
     Dates: start: 20071225
  4. IMODIUM [Concomitant]
     Indication: DIARRHOEA
     Route: 048
  5. METHOTREXATE [Concomitant]
     Indication: CROHN'S DISEASE
     Dates: start: 20060201, end: 20070201

REACTIONS (2)
  - CROHN'S DISEASE [None]
  - NASOPHARYNGITIS [None]
